FAERS Safety Report 10892400 (Version 1)
Quarter: 2015Q1

REPORT INFORMATION
  Report Type: Spontaneous
  Country: US (occurrence: US)
  Receive Date: 20150306
  Receipt Date: 20150306
  Transmission Date: 20150721
  Serious: Yes (Other)
  Sender: FDA-Public Use
  Company Number: US-ASTRAZENECA-2015SE19597

PATIENT
  Age: 67 Year
  Sex: Female
  Weight: 67.1 kg

DRUGS (6)
  1. PRILOSEC [Suspect]
     Active Substance: OMEPRAZOLE MAGNESIUM
     Indication: GASTROOESOPHAGEAL REFLUX DISEASE
     Dosage: DAILY
     Route: 048
     Dates: start: 2001, end: 2003
  2. GLUCOMANNON [Concomitant]
     Indication: BLOOD CHOLESTEROL ABNORMAL
     Route: 065
     Dates: start: 201411
  3. LATANOPROST. [Concomitant]
     Active Substance: LATANOPROST
     Indication: GLAUCOMA
     Dosage: 0.005 % AT NIGHT, ONE DROP IN EACH EYE
     Route: 047
     Dates: start: 201006
  4. NEXIUM [Suspect]
     Active Substance: ESOMEPRAZOLE MAGNESIUM
     Indication: GASTROOESOPHAGEAL REFLUX DISEASE
     Route: 048
     Dates: start: 2003
  5. NABUMETONE. [Concomitant]
     Active Substance: NABUMETONE
     Indication: BACK PAIN
     Route: 065
     Dates: start: 20150101
  6. PRILOSEC [Suspect]
     Active Substance: OMEPRAZOLE MAGNESIUM
     Indication: GASTROOESOPHAGEAL REFLUX DISEASE
     Dosage: OMEPRAZOLE, DAILY
     Route: 048
     Dates: start: 2013, end: 2013

REACTIONS (11)
  - Drug ineffective [Unknown]
  - Cataract [Recovered/Resolved]
  - Gastric polyps [Not Recovered/Not Resolved]
  - Weight increased [Unknown]
  - Eructation [Recovered/Resolved]
  - Malaise [Recovered/Resolved]
  - Body height decreased [Not Recovered/Not Resolved]
  - Spinal osteoarthritis [Not Recovered/Not Resolved]
  - Glaucoma [Not Recovered/Not Resolved]
  - Abdominal pain upper [Unknown]
  - Back pain [Not Recovered/Not Resolved]

NARRATIVE: CASE EVENT DATE: 2010
